FAERS Safety Report 9416569 (Version 1)
Quarter: 2013Q3

REPORT INFORMATION
  Report Type: Report from Study
  Country: CA (occurrence: CA)
  Receive Date: 20130724
  Receipt Date: 20130724
  Transmission Date: 20140515
  Serious: Yes (Other)
  Sender: FDA-Public Use
  Company Number: CA-UCBSA-092050

PATIENT
  Age: 51 Year
  Sex: Female
  Weight: 100 kg

DRUGS (6)
  1. CIMZIA [Suspect]
     Indication: RHEUMATOID ARTHRITIS
     Route: 058
     Dates: start: 20120628, end: 20130620
  2. PREDNISONE [Concomitant]
     Indication: RHEUMATOID ARTHRITIS
     Route: 048
  3. VIMOVO [Concomitant]
     Indication: ANTIINFLAMMATORY THERAPY
     Dosage: DOSE PER INTAKE: 500/20 MG
     Route: 048
  4. ESCITALOPRAM [Concomitant]
     Indication: ANTICIPATORY ANXIETY
     Route: 048
  5. ATIVAN [Concomitant]
     Indication: ANXIETY
     Route: 048
  6. TWYNSTA [Concomitant]
     Indication: HYPERTENSION
     Dosage: 85/5 MG
     Route: 048

REACTIONS (1)
  - Retinal detachment [Recovering/Resolving]
